FAERS Safety Report 4853327-3 (Version None)
Quarter: 2005Q4

REPORT INFORMATION
  Report Type: 
  Country: None (occurrence: None)
  Receive Date: 20051214
  Receipt Date: 20051205
  Transmission Date: 20060501
  Serious: Yes (Hospitalization)
  Sender: FDA-Public Use
  Company Number: FR-GLAXOSMITHKLINE-B0403116A

PATIENT
  Age: 52 Year
  Sex: Female

DRUGS (3)
  1. ZOVIRAX [Suspect]
     Indication: INFECTION PROPHYLAXIS
     Route: 048
     Dates: start: 20050830, end: 20051004
  2. ZELITREX [Suspect]
     Indication: INFECTION PROPHYLAXIS
     Route: 048
     Dates: start: 20050830, end: 20051004
  3. BACTRIM [Suspect]
     Indication: INFECTION PROPHYLAXIS
     Route: 048
     Dates: start: 20050830, end: 20051004

REACTIONS (7)
  - C-REACTIVE PROTEIN INCREASED [None]
  - DERMATITIS EXFOLIATIVE [None]
  - FEELING HOT [None]
  - ORAL CANDIDIASIS [None]
  - PRURIGO [None]
  - RASH MACULO-PAPULAR [None]
  - TOXIC SKIN ERUPTION [None]
